FAERS Safety Report 12471621 (Version 1)
Quarter: 2016Q2

REPORT INFORMATION
  Report Type: Spontaneous
  Country: US (occurrence: None)
  Receive Date: 20160615
  Receipt Date: 20160615
  Transmission Date: 20160815
  Serious: Yes (Hospitalization)
  Sender: FDA-Public Use
  Company Number: None

PATIENT
  Age: 36 Year
  Sex: Female
  Weight: 92.6 kg

DRUGS (13)
  1. CELEXA [Concomitant]
     Active Substance: CITALOPRAM HYDROBROMIDE
  2. APRESOLINE HYDROCHLORIDE [Concomitant]
     Active Substance: HYDRALAZINE HYDROCHLORIDE
  3. HUMALOG [Concomitant]
     Active Substance: INSULIN LISPRO
  4. IMODIUM [Concomitant]
     Active Substance: LOPERAMIDE HYDROCHLORIDE
  5. COUMADIN [Suspect]
     Active Substance: WARFARIN SODIUM
     Indication: JUGULAR VEIN THROMBOSIS
     Dosage: RECENT  2MG DAILY PO
     Route: 048
  6. RENVELA [Concomitant]
     Active Substance: SEVELAMER CARBONATE
  7. ALBUTEROL. [Concomitant]
     Active Substance: ALBUTEROL
  8. ZYRTEC [Concomitant]
     Active Substance: CETIRIZINE HYDROCHLORIDE
  9. PHOSLO [Concomitant]
     Active Substance: CALCIUM ACETATE
  10. FOLIC ACID. [Concomitant]
     Active Substance: FOLIC ACID
  11. AMLODIPINE [Concomitant]
     Active Substance: AMLODIPINE BESYLATE
  12. KLONOPIN [Concomitant]
     Active Substance: CLONAZEPAM
  13. ZOFRAN [Concomitant]
     Active Substance: ONDANSETRON HYDROCHLORIDE

REACTIONS (2)
  - Vaginal haemorrhage [None]
  - Anaemia [None]

NARRATIVE: CASE EVENT DATE: 20151002
